FAERS Safety Report 8257172-0 (Version None)
Quarter: 2012Q1

REPORT INFORMATION
  Report Type: 
  Country: None (occurrence: None)
  Receive Date: 20120330
  Receipt Date: 20120330
  Transmission Date: 20120608
  Serious: Yes (Hospitalization)
  Sender: FDA-Public Use
  Company Number: None

PATIENT
  Sex: Female
  Weight: 50.8 kg

DRUGS (21)
  1. CALCIUM CARBONATE [Concomitant]
  2. DSS [Concomitant]
  3. POTASSIUM CHLORIDE [Concomitant]
  4. APAP TAB [Concomitant]
  5. CITALOPRAM HYDROBROMIDE [Concomitant]
  6. ALLEGRA [Concomitant]
  7. ASPIRIN [Suspect]
     Indication: ATRIAL FIBRILLATION
     Dosage: 81MG DAILY PO
     Route: 048
     Dates: start: 20111101, end: 20111207
  8. NEXIUM [Concomitant]
  9. FLEETS ENEMA [Concomitant]
  10. PRADAXA [Suspect]
     Indication: ATRIAL FIBRILLATION
     Dosage: 150MG BID PO
     Route: 048
     Dates: start: 20111101, end: 20111207
  11. FOSAMAX [Concomitant]
  12. LEVOTHYROXINE SODIUM [Concomitant]
  13. VIT D3 [Concomitant]
  14. NITROGLYCERIN [Concomitant]
  15. QVAR 40 [Concomitant]
  16. DIGOXIN [Concomitant]
  17. ALBUTEROL [Concomitant]
  18. AMBIEN [Concomitant]
  19. NORVASC [Concomitant]
  20. MOM [Concomitant]
  21. DULCOLAX [Concomitant]

REACTIONS (2)
  - RECTAL HAEMORRHAGE [None]
  - GASTROINTESTINAL HAEMORRHAGE [None]
